FAERS Safety Report 14713426 (Version 2)
Quarter: 2018Q2

REPORT INFORMATION
  Report Type: Spontaneous
  Country: PT (occurrence: PT)
  Receive Date: 20180404
  Receipt Date: 20180427
  Transmission Date: 20180711
  Serious: Yes (Disabling)
  Sender: FDA-Public Use
  Company Number: PT-ELI_LILLY_AND_COMPANY-PT201803010628

PATIENT
  Age: 63 Year
  Sex: Male
  Weight: 96 kg

DRUGS (10)
  1. ESPIRONOLACTONA ALTER [Concomitant]
     Active Substance: SPIRONOLACTONE
     Indication: HYPERTENSION
     Dosage: 50 MG, DAILY
     Route: 048
     Dates: start: 2016
  2. SIVALES [Concomitant]
     Indication: HYPERCHOLESTEROLAEMIA
     Dosage: 20 MG, DAILY
     Route: 048
     Dates: start: 2016
  3. FENOFIBRATE MYLAN [Concomitant]
     Active Substance: FENOFIBRATE
     Indication: HYPERCHOLESTEROLAEMIA
     Dosage: 145 MG, DAILY
     Route: 048
     Dates: start: 2017
  4. TRIPLIXAM [Concomitant]
     Active Substance: AMLODIPINE BESYLATE\INDAPAMIDE\PERINDOPRIL ARGININE
     Indication: HYPERTENSION
     Dosage: 1 DF, DAILY
     Route: 048
     Dates: start: 2016
  5. CIALIS [Suspect]
     Active Substance: TADALAFIL
     Indication: ERECTILE DYSFUNCTION
     Dosage: 20 MG, DAILY
     Route: 048
     Dates: start: 20180310, end: 20180310
  6. VITAROS [Suspect]
     Active Substance: ALPROSTADIL
     Indication: ERECTILE DYSFUNCTION
     Dosage: 1 DF, DAILY
     Route: 061
     Dates: start: 20180310, end: 20180310
  7. ZYLORIC [Concomitant]
     Active Substance: ALLOPURINOL
     Indication: HYPERURICAEMIA
     Dosage: 300 MG, DAILY
     Route: 048
     Dates: start: 2017
  8. METFORMIN [Concomitant]
     Active Substance: METFORMIN HYDROCHLORIDE
     Indication: DIABETES MELLITUS
     Dosage: 2000 MG, DAILY
     Route: 048
     Dates: start: 2016
  9. NEBILET [Concomitant]
     Active Substance: NEBIVOLOL
     Indication: HYPERTENSION
     Dosage: 5 MG, DAILY
     Route: 048
     Dates: start: 2016
  10. ESOMEPRAZOL KRKA [Concomitant]
     Indication: OESOPHAGEAL DISORDER
     Dosage: 40 MG, DAILY
     Route: 048
     Dates: start: 2017

REACTIONS (4)
  - Erythema [Recovered/Resolved]
  - Purpura [Recovered/Resolved]
  - Penile erythema [Recovered/Resolved]
  - Penile swelling [Recovered/Resolved]

NARRATIVE: CASE EVENT DATE: 20180310
